FAERS Safety Report 9080262 (Version 2)
Quarter: 2013Q1

REPORT INFORMATION
  Report Type: Spontaneous
  Country: US (occurrence: US)
  Receive Date: 20130218
  Receipt Date: 20130225
  Transmission Date: 20140127
  Serious: Yes (Death, Other)
  Sender: FDA-Public Use
  Company Number: PHHY2013US015134

PATIENT
  Age: 58 Year
  Sex: Male

DRUGS (6)
  1. HYDRALAZINE [Suspect]
     Indication: HYPERTENSION
     Dosage: 50 MG, TID
  2. LISINOPRIL [Concomitant]
     Dosage: UNK UKN, UNK
  3. BUMETANIDE [Concomitant]
     Dosage: UNK UKN, UNK
  4. ASPIRIN [Concomitant]
  5. SPIRONOLACTONE [Concomitant]
     Dosage: UNK UKN, UNK
  6. CARVEDILOL [Concomitant]
     Dosage: UNK UKN, UNK

REACTIONS (16)
  - Anti-neutrophil cytoplasmic antibody positive vasculitis [Fatal]
  - Pulmonary renal syndrome [Fatal]
  - Haemoptysis [Unknown]
  - Respiratory distress [Unknown]
  - Renal impairment [Not Recovered/Not Resolved]
  - Pulmonary embolism [Unknown]
  - Pulmonary congestion [Unknown]
  - Pulmonary alveolar haemorrhage [Unknown]
  - Red blood cells urine [Unknown]
  - Lung infiltration [Unknown]
  - Urinary casts [Unknown]
  - Rales [Unknown]
  - Vasculitis [Unknown]
  - Fatigue [Unknown]
  - Asthenia [Unknown]
  - Arthralgia [Unknown]
